FAERS Safety Report 21434802 (Version 12)
Quarter: 2025Q1

REPORT INFORMATION
  Report Type: Report from Study
  Country: US (occurrence: US)
  Receive Date: 20221010
  Receipt Date: 20250110
  Transmission Date: 20250409
  Serious: Yes (Other)
  Sender: UCB
  Company Number: US-UCBSA-2022058813

PATIENT
  Age: 15 Year
  Sex: Male
  Weight: 47.2 kg

DRUGS (9)
  1. FINTEPLA [Suspect]
     Active Substance: FENFLURAMINE
     Indication: Severe myoclonic epilepsy of infancy
     Dosage: 4.5 MILLILITER, 2X/DAY (BID)
     Dates: start: 20220119
  2. FINTEPLA [Suspect]
     Active Substance: FENFLURAMINE
     Dosage: 6 MILLILITER, 2X/DAY (BID)
     Dates: start: 20220120
  3. FINTEPLA [Suspect]
     Active Substance: FENFLURAMINE
     Dosage: 6 MILLILITER, 2X/DAY (BID)
  4. FINTEPLA [Suspect]
     Active Substance: FENFLURAMINE
     Dosage: 6 MILLILITER, 2X/DAY (BID)
     Dates: start: 202302
  5. FINTEPLA [Suspect]
     Active Substance: FENFLURAMINE
     Dosage: 8 MILLILITER, 2X/DAY (BID)
     Dates: start: 20231102
  6. FINTEPLA [Suspect]
     Active Substance: FENFLURAMINE
  7. VALPROIC ACID [Concomitant]
     Active Substance: VALPROIC ACID
     Indication: Product used for unknown indication
  8. VALPROIC ACID [Concomitant]
     Active Substance: VALPROIC ACID
  9. KLONOPIN [Concomitant]
     Active Substance: CLONAZEPAM
     Indication: Product used for unknown indication

REACTIONS (9)
  - Seizure [Not Recovered/Not Resolved]
  - Focal dyscognitive seizures [Recovered/Resolved]
  - Generalised tonic-clonic seizure [Recovered/Resolved]
  - Myoclonic epilepsy [Recovered/Resolved]
  - Seizure cluster [Unknown]
  - Crying [Unknown]
  - Weight increased [Not Recovered/Not Resolved]
  - Somnolence [Not Recovered/Not Resolved]
  - Off label use [Unknown]

NARRATIVE: CASE EVENT DATE: 20220929
